FAERS Safety Report 6790734-6 (Version None)
Quarter: 2010Q2

REPORT INFORMATION
  Report Type: 
  Country: None (occurrence: None)
  Receive Date: 20100624
  Receipt Date: 20100622
  Transmission Date: 20101027
  Serious: Yes (Disabling)
  Sender: FDA-Public Use
  Company Number: B0661799A

PATIENT
  Age: 27 Year
  Sex: Female

DRUGS (2)
  1. ORLISTAT [Suspect]
     Route: 048
     Dates: start: 20100504
  2. METHOTREXATE [Suspect]
     Indication: PSORIASIS
     Route: 048
     Dates: start: 20091101, end: 20100610

REACTIONS (1)
  - ALANINE AMINOTRANSFERASE INCREASED [None]
